FAERS Safety Report 7364937-6 (Version None)
Quarter: 2011Q1

REPORT INFORMATION
  Report Type: 
  Country: None (occurrence: None)
  Receive Date: 20110311
  Receipt Date: 20110303
  Transmission Date: 20110831
  Serious: Yes (Other)
  Sender: FDA-Public Use
  Company Number: DIB2011001

PATIENT
  Sex: Female

DRUGS (6)
  1. FOLIC ACID [Concomitant]
  2. SUPPLEMENTS [Concomitant]
  3. METHOTREXATE [Concomitant]
  4. MULTIVITAMIN [Concomitant]
  5. PREDNISONE [Concomitant]
  6. DIBENZYLINE [Suspect]
     Indication: PHAEOCHROMOCYTOMA
     Dosage: SINGLE CAPSULE
     Dates: start: 20110225

REACTIONS (3)
  - PALPITATIONS [None]
  - HEADACHE [None]
  - BLOOD PRESSURE FLUCTUATION [None]
